FAERS Safety Report 9206259 (Version 1)
Quarter: 2013Q2

REPORT INFORMATION
  Report Type: Spontaneous
  Country: US (occurrence: US)
  Receive Date: 20130403
  Receipt Date: 20130403
  Transmission Date: 20140414
  Serious: No
  Sender: FDA-Public Use
  Company Number: US-PFIZER INC-2013104038

PATIENT
  Sex: Male

DRUGS (2)
  1. GLUCOTROL [Suspect]
     Dosage: UNK
     Dates: end: 201211
  2. ACCUPRIL [Suspect]
     Dosage: UNK
     Dates: end: 201211

REACTIONS (1)
  - Glycosylated haemoglobin increased [Unknown]
